FAERS Safety Report 11264919 (Version 2)
Quarter: 2015Q3

REPORT INFORMATION
  Report Type: Spontaneous
  Country: JP (occurrence: JP)
  Receive Date: 20150713
  Receipt Date: 20150722
  Transmission Date: 20151125
  Serious: Yes (Other)
  Sender: FDA-Public Use
  Company Number: JP-MERCK-1507JPN005153

PATIENT
  Age: 48 Year
  Sex: Male

DRUGS (2)
  1. TEMOCAPRILAT [Concomitant]
     Indication: HYPERTENSION
     Dosage: 2 MG, QD
     Route: 065
  2. INTERFERON ALFA-2B [Suspect]
     Active Substance: INTERFERON ALFA-2B
     Indication: METASTASES TO LYMPH NODES
     Dosage: DAILY DOSE UNKNOWN
     Route: 030

REACTIONS (2)
  - Metastases to lymph nodes [Unknown]
  - Drug ineffective [Unknown]
